FAERS Safety Report 4854056-2 (Version None)
Quarter: 2005Q4

REPORT INFORMATION
  Report Type: 
  Country: None (occurrence: None)
  Receive Date: 20051214
  Receipt Date: 20051209
  Transmission Date: 20060501
  Serious: Yes (Hospitalization)
  Sender: FDA-Public Use
  Company Number: US-MERCK-0512USA01752

PATIENT
  Age: 53 Year
  Sex: Female

DRUGS (4)
  1. SINGULAIR [Suspect]
     Indication: HYPERSENSITIVITY
     Route: 048
     Dates: start: 20050301, end: 20051206
  2. SINGULAIR [Suspect]
     Indication: BRONCHIAL HYPERACTIVITY
     Route: 048
     Dates: start: 20050301, end: 20051206
  3. ENALAPRIL MALEATE [Concomitant]
     Route: 065
  4. PULMICORT [Concomitant]
     Route: 065

REACTIONS (1)
  - CHOLELITHIASIS [None]
